FAERS Safety Report 14412335 (Version 1)
Quarter: 2018Q1

REPORT INFORMATION
  Report Type: Spontaneous
  Country: US (occurrence: US)
  Receive Date: 20180119
  Receipt Date: 20180119
  Transmission Date: 20180509
  Serious: No
  Sender: FDA-Public Use
  Company Number: PHEH2018US001901

PATIENT
  Sex: Male

DRUGS (2)
  1. LORATADINE TABLETS [Suspect]
     Active Substance: LORATADINE
     Indication: PARANASAL SINUS DISCOMFORT
     Dosage: 10 MG, UNK
     Route: 048
  2. LORATADINE TABLETS [Suspect]
     Active Substance: LORATADINE
     Indication: SINUS PAIN

REACTIONS (1)
  - Paranasal sinus hypersecretion [Unknown]
